FAERS Safety Report 7606612-6 (Version None)
Quarter: 2011Q3

REPORT INFORMATION
  Report Type: 
  Country: None (occurrence: None)
  Receive Date: 20110713
  Receipt Date: 20110706
  Transmission Date: 20111222
  Serious: Yes (Death, Hospitalization)
  Sender: FDA-Public Use
  Company Number: US-ALEXION-A201100736

PATIENT
  Sex: Female

DRUGS (8)
  1. MULTIVITAMIN [Concomitant]
  2. PRILOSEC [Concomitant]
  3. SOLIRIS [Suspect]
     Indication: PAROXYSMAL NOCTURNAL HAEMOGLOBINURIA
     Dosage: UNK
     Route: 042
     Dates: end: 20110322
  4. SOLIRIS [Suspect]
     Dosage: UNK, SINGLE
     Route: 042
     Dates: start: 20110601, end: 20110601
  5. CALTRATE D PLUS MINERALS [Concomitant]
  6. SYNTHROID [Concomitant]
  7. VITAMIN D [Concomitant]
  8. FOLIC ACID [Concomitant]

REACTIONS (16)
  - MYELODYSPLASTIC SYNDROME [None]
  - GAIT DISTURBANCE [None]
  - CONDITION AGGRAVATED [None]
  - PNEUMONITIS [None]
  - SEPSIS [None]
  - LUNG DISORDER [None]
  - TRANSFUSION REACTION [None]
  - PNEUMONIA [None]
  - ASTHENIA [None]
  - PAROXYSMAL NOCTURNAL HAEMOGLOBINURIA [None]
  - MUCOSAL INFLAMMATION [None]
  - RASH [None]
  - PANCYTOPENIA [None]
  - HAEMORRHAGE [None]
  - COUGH [None]
  - CONTUSION [None]
